FAERS Safety Report 6931355-1 (Version None)
Quarter: 2010Q3

REPORT INFORMATION
  Report Type: 
  Country: None (occurrence: None)
  Receive Date: 20100816
  Receipt Date: 20100809
  Transmission Date: 20110219
  Serious: Yes (Other)
  Sender: FDA-Public Use
  Company Number: 016908

PATIENT
  Sex: Female

DRUGS (1)
  1. KEPPRA [Suspect]
     Indication: EPILEPSY
     Dosage: (1 G ORAL)
     Route: 048
     Dates: start: 20090709, end: 20100120

REACTIONS (2)
  - DEPRESSION [None]
  - WEIGHT DECREASED [None]
